FAERS Safety Report 8152535-6 (Version None)
Quarter: 2012Q1

REPORT INFORMATION
  Report Type: 
  Country: None (occurrence: None)
  Receive Date: 20120221
  Receipt Date: 20120211
  Transmission Date: 20120608
  Serious: Yes (Other)
  Sender: FDA-Public Use
  Company Number: US-US-EMD SERONO, INC.-7113001

PATIENT
  Sex: Male

DRUGS (1)
  1. REBIF [Suspect]
     Indication: MULTIPLE SCLEROSIS
     Route: 058
     Dates: start: 20070621

REACTIONS (3)
  - CORONARY ARTERY STENOSIS [None]
  - NEOPLASM MALIGNANT [None]
  - BLOOD CHOLESTEROL INCREASED [None]
